FAERS Safety Report 7598252-2 (Version None)
Quarter: 2011Q3

REPORT INFORMATION
  Report Type: 
  Country: None (occurrence: None)
  Receive Date: 20110708
  Receipt Date: 20110701
  Transmission Date: 20111222
  Serious: Yes (Hospitalization, Other)
  Sender: FDA-Public Use
  Company Number: US-ROCHE-787811

PATIENT
  Sex: Female
  Weight: 59.9 kg

DRUGS (3)
  1. BEVACIZUMAB [Suspect]
     Route: 042
     Dates: start: 20110404, end: 20110606
  2. TAXOL [Concomitant]
  3. CARBOPLATIN [Concomitant]

REACTIONS (7)
  - DECREASED APPETITE [None]
  - MENTAL DISORDER [None]
  - HYPERTENSION [None]
  - ABASIA [None]
  - GENERAL PHYSICAL HEALTH DETERIORATION [None]
  - ASTHENIA [None]
  - DROOLING [None]
